FAERS Safety Report 6326784-3 (Version None)
Quarter: 2009Q3

REPORT INFORMATION
  Report Type: 
  Country: None (occurrence: None)
  Receive Date: 20090825
  Receipt Date: 20090820
  Transmission Date: 20100115
  Serious: Yes (Death)
  Sender: FDA-Public Use
  Company Number: TH-AVENTIS-200919053GDDC

PATIENT
  Age: 55 Year
  Sex: Male
  Weight: 63 kg

DRUGS (11)
  1. DOCETAXEL [Suspect]
     Route: 042
     Dates: start: 20081021, end: 20081021
  2. DOCETAXEL [Suspect]
  3. CISPLATIN [Suspect]
     Route: 042
     Dates: start: 20081021, end: 20081021
  4. ONDANSETRON [Concomitant]
     Indication: VOMITING
     Route: 042
     Dates: start: 20081021, end: 20081021
  5. DEXAMETHASONE [Concomitant]
     Route: 042
     Dates: start: 20081021, end: 20081021
  6. DEXAMETHASONE [Concomitant]
     Route: 048
     Dates: start: 20081020, end: 20081022
  7. ATIVAN [Concomitant]
     Indication: SEDATION
     Dosage: DOSE: 1 TAB
     Route: 048
     Dates: start: 20081021, end: 20081021
  8. MANITOL [Concomitant]
     Route: 042
     Dates: start: 20081021, end: 20081021
  9. RANITIDINE [Concomitant]
     Route: 048
     Dates: start: 20081020, end: 20081022
  10. DOMPERIDONE [Concomitant]
     Indication: VOMITING
     Route: 048
     Dates: start: 20081020, end: 20081022
  11. METACLOPRAMIDE [Concomitant]
     Indication: VOMITING
     Route: 048
     Dates: start: 20081020, end: 20081021

REACTIONS (3)
  - GASTROINTESTINAL HAEMORRHAGE [None]
  - HAEMATEMESIS [None]
  - HYPOTENSION [None]
